FAERS Safety Report 10348100 (Version 1)
Quarter: 2014Q3

REPORT INFORMATION
  Report Type: Spontaneous
  Country: US (occurrence: US)
  Receive Date: 20140729
  Receipt Date: 20140729
  Transmission Date: 20150326
  Serious: Yes (Other)
  Sender: FDA-Public Use
  Company Number: PHHY2014US090781

PATIENT
  Age: 73 Year
  Sex: Female

DRUGS (3)
  1. WARFARIN [Suspect]
     Active Substance: WARFARIN
     Dosage: 61-74 MG, WEEKLY
  2. WARFARIN [Interacting]
     Active Substance: WARFARIN
     Dosage: 10 MG, DAILY
  3. WARFARIN [Interacting]
     Active Substance: WARFARIN
     Dosage: 12 MG, DAILY

REACTIONS (2)
  - Food interaction [Unknown]
  - International normalised ratio increased [Unknown]
